FAERS Safety Report 19570393 (Version 1)
Quarter: 2021Q3

REPORT INFORMATION
  Report Type: Spontaneous
  Country: US (occurrence: US)
  Receive Date: 20210715
  Receipt Date: 20210715
  Transmission Date: 20211014
  Serious: No
  Sender: FDA-Public Use
  Company Number: NVSC2021US157155

PATIENT
  Sex: Female

DRUGS (1)
  1. ENTRESTO [Suspect]
     Active Substance: SACUBITRIL\VALSARTAN
     Indication: PRODUCT USED FOR UNKNOWN INDICATION
     Dosage: 49/51MG (SACUBITRIL 48.6 MG, VALSARTAN 51.4 MG)
     Route: 065

REACTIONS (3)
  - Contusion [Unknown]
  - Dizziness [Unknown]
  - Fall [Unknown]
